FAERS Safety Report 8807308 (Version 1)
Quarter: 2012Q4

REPORT INFORMATION
  Report Type: 
  Country: JP (occurrence: JP)
  Receive Date: 20120925
  Receipt Date: 20120925
  Transmission Date: 20130627
  Serious: Yes (Other)
  Sender: FDA-Public Use
  Company Number: JP-WATSON-2012-16548

PATIENT
  Age: 37 Year
  Sex: Female

DRUGS (3)
  1. CYCLOSPORINE (WATSON LABORATORIES) [Suspect]
     Indication: PROPHYLAXIS AGAINST TRANSPLANT REJECTION
     Dosage: UNK
     Route: 065
  2. TACROLIMUS (UNKNOWN) [Suspect]
     Indication: PROPHYLAXIS AGAINST TRANSPLANT REJECTION
     Dosage: UNK
     Route: 065
  3. CEFCAPENE PIVOXIL [Suspect]
     Indication: CYSTITIS
     Dosage: UNK
     Route: 065

REACTIONS (3)
  - Granuloma [Recovering/Resolving]
  - Tubulointerstitial nephritis [Recovering/Resolving]
  - Toxicity to various agents [Recovering/Resolving]
